FAERS Safety Report 9397193 (Version 1)
Quarter: 2013Q3

REPORT INFORMATION
  Report Type: Report from Study
  Country: BR (occurrence: BR)
  Receive Date: 20130712
  Receipt Date: 20130712
  Transmission Date: 20140515
  Serious: Yes (Death, Hospitalization, Other)
  Sender: FDA-Public Use
  Company Number: PHHY2013BR073404

PATIENT
  Age: 81 Year
  Sex: Male
  Weight: 95 kg

DRUGS (4)
  1. FORASEQ [Suspect]
     Dosage: 1 DF, UNK
  2. SUSTRATE [Concomitant]
     Indication: CARDIAC DISORDER
     Dosage: 1 DF, QD
     Route: 048
     Dates: start: 2008
  3. MICARDIS [Concomitant]
     Indication: CARDIAC DISORDER
     Dosage: 1 DF, QD
     Route: 048
     Dates: start: 2008
  4. AEROLIN [Concomitant]
     Indication: DYSPNOEA
     Dosage: UNK UKN, BID
     Dates: start: 2009

REACTIONS (3)
  - Cerebrovascular accident [Fatal]
  - Cardiomegaly [Not Recovered/Not Resolved]
  - Angina pectoris [Recovered/Resolved]
